FAERS Safety Report 8940317 (Version 2)
Quarter: 2013Q3

REPORT INFORMATION
  Report Type: Spontaneous
  Country: BR (occurrence: BR)
  Receive Date: 20121130
  Receipt Date: 20130830
  Transmission Date: 20140515
  Serious: Yes (Hospitalization)
  Sender: FDA-Public Use
  Company Number: BR-B.I. PHARMACEUTICALS,INC./RIDGEFIELD-2012-BR-01318BR

PATIENT
  Age: 28 Week
  Sex: 0
  Weight: 1.7 kg

DRUGS (4)
  1. ELODIUS [Suspect]
     Indication: EXPOSURE DURING PREGNANCY
     Route: 064
  2. LAMIVUDINE [Concomitant]
     Indication: EXPOSURE DURING PREGNANCY
     Route: 064
     Dates: end: 20121118
  3. TENOFOVIR [Concomitant]
     Indication: EXPOSURE DURING PREGNANCY
     Route: 064
     Dates: end: 20121118
  4. RALTEGRAVIR [Concomitant]
     Indication: EXPOSURE DURING PREGNANCY
     Route: 064

REACTIONS (2)
  - Premature baby [Recovered/Resolved]
  - Low birth weight baby [Recovered/Resolved]
